FAERS Safety Report 9212812 (Version 1)
Quarter: 2013Q2

REPORT INFORMATION
  Report Type: Spontaneous
  Country: NL (occurrence: NL)
  Receive Date: 20130405
  Receipt Date: 20130405
  Transmission Date: 20140414
  Serious: Yes (Other)
  Sender: FDA-Public Use
  Company Number: NL-AMGEN-NLDSP2013023826

PATIENT
  Age: 43 Year
  Sex: Female

DRUGS (2)
  1. ENBREL [Suspect]
     Indication: PSORIATIC ARTHROPATHY
     Dosage: 50 MG, WEEKLY
     Dates: start: 2010, end: 201207
  2. VOLTAREN                           /00372302/ [Concomitant]
     Dosage: UNK UNK, UNK

REACTIONS (5)
  - Oral pain [Recovered/Resolved]
  - Glossodynia [Recovered/Resolved]
  - Respiratory tract infection [Recovered/Resolved]
  - Eye infection [Recovered/Resolved]
  - Mucosal infection [Recovered/Resolved]
